FAERS Safety Report 19057558 (Version 1)
Quarter: 2021Q1

REPORT INFORMATION
  Report Type: Spontaneous
  Country: US (occurrence: US)
  Receive Date: 20210324
  Receipt Date: 20210324
  Transmission Date: 20210420
  Serious: Yes (Other)
  Sender: FDA-Public Use
  Company Number: US-ASTRAZENECA-2021A176468

PATIENT
  Sex: Female

DRUGS (16)
  1. HYZAAR [Concomitant]
     Active Substance: HYDROCHLOROTHIAZIDE\LOSARTAN POTASSIUM
  2. TAGRISSO [Suspect]
     Active Substance: OSIMERTINIB
     Indication: LUNG CARCINOMA CELL TYPE UNSPECIFIED STAGE 0
     Route: 048
     Dates: start: 20200306
  3. ATIVAN [Concomitant]
     Active Substance: LORAZEPAM
  4. OXYCODONE HYDROCHLORIDE. [Concomitant]
     Active Substance: OXYCODONE HYDROCHLORIDE
  5. PROVERA [Concomitant]
     Active Substance: MEDROXYPROGESTERONE ACETATE
  6. MORPHINE SULFATE CR [Concomitant]
     Active Substance: MORPHINE SULFATE
  7. MACRODANTIN [Concomitant]
     Active Substance: NITROFURANTOIN
  8. COMPAZINE [Concomitant]
     Active Substance: PROCHLORPERAZINE MALEATE
  9. INTRAROSA [Concomitant]
     Active Substance: PRASTERONE
  10. LEVOTHYROXINE SODIUM. [Concomitant]
     Active Substance: LEVOTHYROXINE SODIUM
  11. MORPHINE SULFATE CR [Concomitant]
     Active Substance: MORPHINE SULFATE
  12. TIZANIDINE HYDROCHLORIDE. [Concomitant]
     Active Substance: TIZANIDINE HYDROCHLORIDE
  13. ADDERALL XR [Concomitant]
     Active Substance: AMPHETAMINE ASPARTATE\AMPHETAMINE SULFATE\DEXTROAMPHETAMINE SACCHARATE\DEXTROAMPHETAMINE SULFATE
  14. LUNESTA [Concomitant]
     Active Substance: ESZOPICLONE
  15. FOLIC ACID. [Concomitant]
     Active Substance: FOLIC ACID
  16. ZOFRAN [Concomitant]
     Active Substance: ONDANSETRON HYDROCHLORIDE

REACTIONS (1)
  - Leukaemia [Unknown]
